FAERS Safety Report 5408381-7 (Version None)
Quarter: 2007Q3

REPORT INFORMATION
  Report Type: 
  Country: None (occurrence: None)
  Receive Date: 20070806
  Receipt Date: 20070727
  Transmission Date: 20080115
  Serious: Yes (Hospitalization)
  Sender: FDA-Public Use
  Company Number: THYR-10475

PATIENT
  Age: 60 Year
  Sex: Female

DRUGS (1)
  1. THYROGEN [Suspect]
     Indication: METASTASIS
     Dates: start: 20070701

REACTIONS (1)
  - HYPERTHYROIDISM [None]
